FAERS Safety Report 5837014-0 (Version None)
Quarter: 2008Q3

REPORT INFORMATION
  Report Type: 
  Country: None (occurrence: None)
  Receive Date: 20080807
  Receipt Date: 20080804
  Transmission Date: 20090109
  Serious: Yes (Hospitalization)
  Sender: FDA-Public Use
  Company Number: AU-ROCHE-579286

PATIENT
  Age: 88 Year
  Sex: Female
  Weight: 84 kg

DRUGS (2)
  1. DIAZEPAM [Suspect]
     Indication: DRUG USE FOR UNKNOWN INDICATION
     Dosage: ONE DOSE UNSPECIFIED DAILY.
     Route: 065
     Dates: start: 20080224, end: 20080323
  2. DOXEPIN HYDROCHLORIDE [Suspect]
     Indication: DRUG USE FOR UNKNOWN INDICATION
     Dosage: ONE DOSE UNSPECIFIED ONE TIME,
     Route: 065
     Dates: start: 20080224

REACTIONS (5)
  - HYPERHIDROSIS [None]
  - NAUSEA [None]
  - TACHYCARDIA [None]
  - VOMITING [None]
  - WITHDRAWAL SYNDROME [None]
